FAERS Safety Report 13663490 (Version 1)
Quarter: 2017Q2

REPORT INFORMATION
  Report Type: Spontaneous
  Country: US (occurrence: US)
  Receive Date: 20170619
  Receipt Date: 20170619
  Transmission Date: 20170830
  Serious: No
  Sender: FDA-Public Use
  Company Number: US-PFIZER INC-2017148905

PATIENT
  Age: 53 Year
  Sex: Female
  Weight: 68.27 kg

DRUGS (8)
  1. LYRICA [Suspect]
     Active Substance: PREGABALIN
     Indication: NEURALGIA
     Dosage: 150 MG, 1X/DAY
     Route: 048
     Dates: start: 2017
  2. LYRICA [Suspect]
     Active Substance: PREGABALIN
     Dosage: 300 MG, 1X/DAY
     Dates: start: 2017
  3. TRAMADOL. [Concomitant]
     Active Substance: TRAMADOL
     Indication: PAIN
     Dosage: 50 MG, 1X/DAY
     Route: 048
     Dates: start: 2016
  4. HYDROCODONE [Concomitant]
     Active Substance: HYDROCODONE
     Indication: PAIN
     Dosage: 1 DF, AS NEEDED,(10/325MG BY MOUTH TWICE A DAY )
     Route: 048
     Dates: start: 2016
  5. LISINOPRIL. [Concomitant]
     Active Substance: LISINOPRIL
     Indication: BLOOD PRESSURE MEASUREMENT
     Dosage: 40 MG, 1X/DAY
     Route: 048
  6. LYRICA [Suspect]
     Active Substance: PREGABALIN
     Dosage: 175 MG, 1X/DAY
     Dates: start: 2017
  7. HYDROCODONE [Concomitant]
     Active Substance: HYDROCODONE
     Indication: FEELING OF RELAXATION
  8. BC (ASPIRIN\CAFFEINE) [Concomitant]
     Active Substance: ASPIRIN\CAFFEINE
     Indication: HEADACHE
     Dosage: 845 MG, 2X/DAY
     Route: 048
     Dates: start: 2016

REACTIONS (4)
  - Drug ineffective for unapproved indication [Unknown]
  - Product container issue [Unknown]
  - Poor quality drug administered [Unknown]
  - Intentional product misuse [Unknown]

NARRATIVE: CASE EVENT DATE: 2017
